FAERS Safety Report 6104583-5 (Version None)
Quarter: 2009Q1

REPORT INFORMATION
  Report Type: 
  Country: None (occurrence: None)
  Receive Date: 20090303
  Receipt Date: 20090217
  Transmission Date: 20090719
  Serious: Yes (Other)
  Sender: FDA-Public Use
  Company Number: 2009AL001063

PATIENT
  Age: 63 Year
  Sex: Male

DRUGS (17)
  1. SERTRALINE HCL [Suspect]
     Indication: DEPRESSION
     Dosage: 50 MG; QD; PO
     Route: 048
     Dates: start: 20070601
  2. CLONIDINE [Concomitant]
  3. MULTI-VITAMINS [Concomitant]
  4. COREG [Concomitant]
  5. LASIX [Concomitant]
  6. POTASSIUM CHLORIDE [Concomitant]
  7. URSOGIOL [Concomitant]
  8. WARFARIN SODIUM [Concomitant]
  9. COLACE [Concomitant]
  10. PREDNISONE [Concomitant]
  11. PROGRAF [Concomitant]
  12. CELLCEPT [Concomitant]
  13. IRON [Concomitant]
  14. MAGNESIUM SULFATE [Concomitant]
  15. PENICILLIN VK [Concomitant]
  16. PROTONIX [Concomitant]
  17. FISH OIL [Concomitant]

REACTIONS (2)
  - BREAST MASS [None]
  - MASTITIS [None]
